FAERS Safety Report 9764590 (Version 1)
Quarter: 2013Q4

REPORT INFORMATION
  Report Type: Spontaneous
  Country: US (occurrence: US)
  Receive Date: 20131217
  Receipt Date: 20131217
  Transmission Date: 20140711
  Serious: No
  Sender: FDA-Public Use
  Company Number: US-BAYER-2013-153942

PATIENT
  Sex: Male
  Weight: 104.31 kg

DRUGS (6)
  1. BETASERON [Suspect]
     Dosage: 0.25 MG, QOD
     Route: 058
  2. DILANTIN [Concomitant]
     Dosage: 30 MG, UNK
  3. NASONEX [Concomitant]
     Dosage: 50 MCG/AC
  4. ADVIL [Concomitant]
     Dosage: 200 MG, UNK
  5. CLARITIN [Concomitant]
     Dosage: 10 MG, UNK
  6. TYLENOL [PARACETAMOL] [Concomitant]
     Dosage: 650 MG, TID

REACTIONS (2)
  - Injection site scar [Unknown]
  - Injection site induration [Unknown]
